FAERS Safety Report 4956049-3 (Version None)
Quarter: 2006Q1

REPORT INFORMATION
  Report Type: 
  Country: None (occurrence: None)
  Receive Date: 20060328
  Receipt Date: 20021101
  Transmission Date: 20060701
  Serious: Yes (Other)
  Sender: FDA-Public Use
  Company Number: DE-MERCK-0603USA03487

PATIENT
  Age: 44 Year
  Sex: Male

DRUGS (11)
  1. CRIXIVAN [Suspect]
     Indication: HIV INFECTION
     Route: 048
     Dates: start: 20000501
  2. SUSTIVA [Suspect]
     Indication: HIV INFECTION
     Route: 048
     Dates: start: 20000801
  3. ATAZANAVIR [Suspect]
     Indication: HIV INFECTION
     Route: 065
  4. VIDEX [Suspect]
     Indication: HIV INFECTION
     Route: 065
  5. ZERIT [Suspect]
     Indication: HIV INFECTION
     Route: 065
     Dates: start: 20010201
  6. KALETRA [Suspect]
     Indication: HIV INFECTION
     Route: 065
     Dates: start: 20010101
  7. RETROVIR [Suspect]
     Indication: HIV INFECTION
     Route: 065
     Dates: start: 20011101
  8. ZIAGEN [Suspect]
     Route: 065
     Dates: start: 20010101
  9. EPIVIR [Suspect]
     Indication: HIV INFECTION
     Route: 065
  10. VIREAD [Suspect]
     Indication: HIV INFECTION
     Route: 065
  11. NORVIR [Suspect]
     Indication: HIV INFECTION
     Route: 065

REACTIONS (13)
  - CORONARY ARTERY DISEASE [None]
  - DIARRHOEA [None]
  - GOITRE [None]
  - HERPES SIMPLEX [None]
  - HYPOKALAEMIA [None]
  - HYPOTHYROIDISM [None]
  - KAPOSI'S SARCOMA [None]
  - LEUKOPENIA [None]
  - MYOCARDIAL INFARCTION [None]
  - OESOPHAGEAL CANDIDIASIS [None]
  - OPPORTUNISTIC INFECTION [None]
  - PSORIASIS [None]
  - THROMBOCYTOPENIA [None]
